FAERS Safety Report 6042336-7 (Version None)
Quarter: 2009Q1

REPORT INFORMATION
  Report Type: 
  Country: None (occurrence: None)
  Receive Date: 20090116
  Receipt Date: 20090106
  Transmission Date: 20090719
  Serious: Yes (Hospitalization, Other)
  Sender: FDA-Public Use
  Company Number: JP-JNJFOC-20081005717

PATIENT
  Age: 63 Year
  Sex: Female
  Weight: 41 kg

DRUGS (16)
  1. REMICADE [Suspect]
     Route: 042
  2. REMICADE [Suspect]
     Indication: BEHCET'S SYNDROME
     Route: 042
  3. PREDNISOLONE [Suspect]
     Route: 048
  4. PREDNISOLONE [Suspect]
     Route: 048
  5. PREDNISOLONE [Suspect]
     Route: 048
  6. PREDNISOLONE [Suspect]
     Route: 048
  7. PREDNISOLONE [Suspect]
     Route: 048
  8. PREDNISOLONE [Suspect]
     Indication: BEHCET'S SYNDROME
     Route: 048
  9. PREDNISOLONE SODIUM SUCCINATE INJ [Suspect]
  10. PREDNISOLONE SODIUM SUCCINATE INJ [Suspect]
  11. PREDNISOLONE SODIUM SUCCINATE INJ [Suspect]
     Indication: BEHCET'S SYNDROME
  12. SOLU-MEDROL [Suspect]
  13. SOLU-MEDROL [Suspect]
     Indication: BEHCET'S SYNDROME
  14. COLCHICIN [Concomitant]
     Route: 048
  15. COLCHICIN [Concomitant]
     Indication: BEHCET'S SYNDROME
     Route: 048
  16. SALAZOPYRIN [Concomitant]
     Indication: BEHCET'S SYNDROME
     Route: 048

REACTIONS (3)
  - CYTOMEGALOVIRUS INFECTION [None]
  - GASTROINTESTINAL ULCER HAEMORRHAGE [None]
  - ILEAL ULCER [None]
